FAERS Safety Report 22531748 (Version 1)
Quarter: 2023Q2

REPORT INFORMATION
  Report Type: Spontaneous
  Country: US (occurrence: None)
  Receive Date: 20230606
  Receipt Date: 20230606
  Transmission Date: 20230722
  Serious: Yes (Hospitalization)
  Sender: FDA-Public Use
  Company Number: None

PATIENT
  Sex: Female

DRUGS (12)
  1. NUCALA [Suspect]
     Active Substance: MEPOLIZUMAB
     Indication: Asthma
     Route: 058
     Dates: start: 20190906
  2. ADVIL [Concomitant]
     Active Substance: IBUPROFEN
  3. ALBUTEROL AER HFA [Concomitant]
  4. ALBUTEROL [Concomitant]
     Active Substance: ALBUTEROL
  5. CLOBETASOL GEL [Concomitant]
  6. FLUCONAZOLE [Concomitant]
  7. KLOR-CON [Concomitant]
     Active Substance: POTASSIUM CHLORIDE
  8. LITHIUM CARBONATE [Concomitant]
     Active Substance: LITHIUM CARBONATE
  9. MONTELUKAST [Concomitant]
     Active Substance: MONTELUKAST SODIUM
  10. NAPROXEN [Concomitant]
     Active Substance: NAPROXEN
  11. NAPROXEN SOD [Concomitant]
  12. ZOLOFT [Concomitant]
     Active Substance: SERTRALINE HYDROCHLORIDE

REACTIONS (5)
  - Asthma [None]
  - Impaired quality of life [None]
  - Influenza [None]
  - Bronchitis [None]
  - Cardiac failure congestive [None]
